FAERS Safety Report 10749169 (Version 1)
Quarter: 2015Q1

REPORT INFORMATION
  Report Type: Spontaneous
  Country: US (occurrence: None)
  Receive Date: 20150116
  Receipt Date: 20150116
  Transmission Date: 20150721
  Serious: Yes (Death)
  Sender: FDA-Public Use
  Company Number: 2014AP000424

PATIENT
  Age: 34 Year
  Sex: Female

DRUGS (2)
  1. BRODIFACOUM [Suspect]
     Active Substance: BRODIFACOUM
     Route: 048
  2. CARBAMAZEPINE. [Suspect]
     Active Substance: CARBAMAZEPINE
     Route: 048

REACTIONS (1)
  - Completed suicide [None]
